FAERS Safety Report 16386671 (Version 1)
Quarter: 2019Q2

REPORT INFORMATION
  Report Type: Spontaneous
  Country: US (occurrence: US)
  Receive Date: 20190604
  Receipt Date: 20190604
  Transmission Date: 20190711
  Serious: Yes (Hospitalization)
  Sender: FDA-Public Use
  Company Number: US-JNJFOC-20190529866

PATIENT
  Age: 92 Year
  Sex: Male

DRUGS (2)
  1. ACETAMINOPHEN. [Suspect]
     Active Substance: ACETAMINOPHEN
     Indication: PRODUCT USED FOR UNKNOWN INDICATION
     Dosage: INGESTED 24 TABLETS OF 500 MG
     Route: 048
  2. SULODEXIDE [Suspect]
     Active Substance: SULODEXIDE
     Indication: PRODUCT USED FOR UNKNOWN INDICATION
     Dosage: 35 TABLETS OF A 250 LIPOPROTEIN LIPASE RELEASING UNITS
     Route: 048

REACTIONS (3)
  - Intentional overdose [Unknown]
  - Atrioventricular block [Recovered/Resolved]
  - Hyponatraemia [Recovered/Resolved]
